FAERS Safety Report 6310472-3 (Version None)
Quarter: 2009Q3

REPORT INFORMATION
  Report Type: 
  Country: None (occurrence: None)
  Receive Date: 20090814
  Receipt Date: 20090810
  Transmission Date: 20100115
  Serious: Yes (Life-Threatening, Hospitalization)
  Sender: FDA-Public Use
  Company Number: JP-GENENTECH-287460

PATIENT
  Sex: Male

DRUGS (10)
  1. RITUXAN [Suspect]
     Indication: NEPHROTIC SYNDROME
     Dosage: 300 MG, UNK
     Route: 042
     Dates: start: 20071122, end: 20071217
  2. MIZORIBINE [Concomitant]
     Indication: NEPHROTIC SYNDROME
     Dosage: 150 MG, QD
     Dates: start: 20060801, end: 20071101
  3. PERSANTINE [Concomitant]
     Indication: NEPHROTIC SYNDROME
     Dosage: 150 MG, QD
     Route: 048
     Dates: start: 20070829, end: 20080226
  4. PREDONINE [Concomitant]
     Indication: NEPHROTIC SYNDROME
     Dosage: 45 MG, QD
     Route: 048
     Dates: start: 20071109, end: 20071210
  5. PREDONINE [Concomitant]
     Dosage: UNK MG, QOD
     Route: 048
     Dates: start: 20071211, end: 20080203
  6. LASIX [Concomitant]
     Indication: NEPHROTIC SYNDROME
     Dosage: 20 MG, QD
     Dates: start: 20071115, end: 20071117
  7. NEORAL [Concomitant]
     Indication: NEPHROTIC SYNDROME
     Dosage: UNK MG, QD
     Route: 048
     Dates: start: 20031101, end: 20080310
  8. NORVASC [Concomitant]
     Indication: HYPERTENSION
     Dosage: 2.5 MG, QD
     Route: 048
     Dates: start: 20071115, end: 20071225
  9. LONGES [Concomitant]
     Indication: HYPERTENSION
     Dosage: 5 MG, QD
     Route: 048
     Dates: start: 20071024, end: 20071114
  10. LONGES [Concomitant]
     Dosage: 5 MG, QD
     Route: 048
     Dates: start: 20071126, end: 20080310

REACTIONS (1)
  - AGRANULOCYTOSIS [None]
